FAERS Safety Report 4473673-5 (Version None)
Quarter: 2004Q4

REPORT INFORMATION
  Report Type: 
  Country: None (occurrence: None)
  Receive Date: 20041013
  Receipt Date: 20041008
  Transmission Date: 20050328
  Serious: Yes (Life-Threatening, Hospitalization, Disabling)
  Sender: FDA-Public Use
  Company Number: US-MERCK-0410USA01465

PATIENT
  Age: 69 Year
  Sex: Female

DRUGS (4)
  1. HYDRODIURIL [Concomitant]
     Route: 048
  2. LEVOXYL [Concomitant]
     Route: 065
  3. PRINIVIL [Concomitant]
     Route: 048
  4. VIOXX [Suspect]
     Indication: ARTHRITIS
     Route: 048
     Dates: start: 20010101, end: 20040908

REACTIONS (3)
  - DYSPNOEA [None]
  - JOINT SWELLING [None]
  - WEIGHT INCREASED [None]
